FAERS Safety Report 13465604 (Version 2)
Quarter: 2017Q2

REPORT INFORMATION
  Report Type: Spontaneous
  Country: US (occurrence: US)
  Receive Date: 20170421
  Receipt Date: 20170516
  Transmission Date: 20170830
  Serious: No
  Sender: FDA-Public Use
  Company Number: US-009507513-1704USA005839

PATIENT
  Sex: Female
  Weight: 63.95 kg

DRUGS (2)
  1. ETONOGESTREL IMPLANT- UNKNOWN [Suspect]
     Active Substance: ETONOGESTREL
     Dosage: 1 ROD / 3 YEARS
     Route: 059
  2. ETONOGESTREL IMPLANT- UNKNOWN [Suspect]
     Active Substance: ETONOGESTREL
     Dosage: 1 ROD / 3 YEARS
     Route: 059
     Dates: end: 201406

REACTIONS (4)
  - Complication associated with device [Not Recovered/Not Resolved]
  - Difficulty removing drug implant [Recovered/Resolved]
  - Menstruation irregular [Not Recovered/Not Resolved]
  - Overdose [Unknown]
